FAERS Safety Report 23406568 (Version 1)
Quarter: 2024Q1

REPORT INFORMATION
  Report Type: Spontaneous
  Country: US (occurrence: None)
  Receive Date: 20240115
  Receipt Date: 20240115
  Transmission Date: 20240410
  Serious: Yes (Other)
  Sender: FDA-Public Use
  Company Number: None

PATIENT
  Age: 35 Year
  Sex: Male

DRUGS (1)
  1. DOVATO [Suspect]
     Active Substance: DOLUTEGRAVIR SODIUM\LAMIVUDINE
     Dosage: OTHER QUANTITY : 1 TAB;?FREQUENCY : DAILY;?
     Route: 048

REACTIONS (5)
  - Hypersensitivity [None]
  - Dyspnoea [None]
  - Urticaria [None]
  - Dysphagia [None]
  - Rash [None]

NARRATIVE: CASE EVENT DATE: 20231123
